FAERS Safety Report 7816472-6 (Version None)
Quarter: 2011Q4

REPORT INFORMATION
  Report Type: 
  Country: None (occurrence: None)
  Receive Date: 20111017
  Receipt Date: 20111012
  Transmission Date: 20120403
  Serious: Yes (Death, Other)
  Sender: FDA-Public Use
  Company Number: US-JNJFOC-20110905032

PATIENT
  Sex: Male
  Weight: 74.84 kg

DRUGS (4)
  1. VIADUR [Concomitant]
     Route: 065
  2. ZYTIGA [Suspect]
     Indication: PROSTATE CANCER
     Route: 048
     Dates: start: 20110615, end: 20110815
  3. AVODART [Concomitant]
     Route: 065
  4. PREDNISONE [Concomitant]
     Route: 065

REACTIONS (3)
  - DEATH [None]
  - LIVER FUNCTION TEST ABNORMAL [None]
  - PROSTATIC SPECIFIC ANTIGEN INCREASED [None]
